FAERS Safety Report 19879537 (Version 1)
Quarter: 2021Q3

REPORT INFORMATION
  Report Type: Spontaneous
  Country: US (occurrence: US)
  Receive Date: 20210923
  Receipt Date: 20210923
  Transmission Date: 20211014
  Serious: No
  Sender: FDA-Public Use
  Company Number: None

PATIENT
  Age: 82 Year
  Sex: Male

DRUGS (2)
  1. HYDROCHLOROTHIAZIDE (HYDROCHLOROTHIAZIDE 25MG TAB) [Suspect]
     Active Substance: HYDROCHLOROTHIAZIDE
     Indication: CARDIAC FAILURE CONGESTIVE
     Route: 048
     Dates: start: 20030212, end: 20210804
  2. FUROSEMIDE (FUROSEMIDE 20MG TAB) [Suspect]
     Active Substance: FUROSEMIDE
     Indication: CARDIAC FAILURE CONGESTIVE
     Route: 048
     Dates: start: 20210805

REACTIONS (4)
  - Arthralgia [None]
  - Acute kidney injury [None]
  - Renal injury [None]
  - Hypokalaemia [None]

NARRATIVE: CASE EVENT DATE: 20210831
